FAERS Safety Report 12655043 (Version 7)
Quarter: 2016Q4

REPORT INFORMATION
  Report Type: Report from Study
  Country: US (occurrence: US)
  Receive Date: 20160816
  Receipt Date: 20161011
  Transmission Date: 20170207
  Serious: Yes (Hospitalization, Other)
  Sender: FDA-Public Use
  Company Number: US-GILEAD-2016-0228492

PATIENT
  Age: 60 Year
  Sex: Female

DRUGS (23)
  1. SUPER B COMPLEX                    /01995301/ [Concomitant]
     Active Substance: CYANOCOBALAMIN\DEXPANTHENOL\NIACINAMIDE\PYRIDOXINE HYDROCHLORIDE\RIBOFLAVIN 5^-PHOSPHATE SODIUM\THIAMINE HYDROCHLORIDE\VITAMIN B COMPLEX
  2. ALDACTONE [Concomitant]
     Active Substance: SPIRONOLACTONE
  3. VITAMIN B12 [Concomitant]
     Active Substance: CYANOCOBALAMIN
  4. LISINOPRIL. [Concomitant]
     Active Substance: LISINOPRIL
  5. TURMERIC                           /01079602/ [Concomitant]
     Active Substance: TURMERIC
  6. ATORVASTATIN [Concomitant]
     Active Substance: ATORVASTATIN
  7. MVI                                /01825701/ [Concomitant]
     Active Substance: VITAMINS
  8. ASTIN                              /00139501/ [Concomitant]
  9. ADCIRCA [Concomitant]
     Active Substance: TADALAFIL
  10. UPTRAVI [Concomitant]
     Active Substance: SELEXIPAG
  11. GELATIN [Concomitant]
     Active Substance: GELATIN
  12. FUROSEMIDE. [Concomitant]
     Active Substance: FUROSEMIDE
  13. METOPROLOL. [Concomitant]
     Active Substance: METOPROLOL
  14. INDOMETHACIN                       /00003801/ [Concomitant]
     Active Substance: INDOMETHACIN
  15. ULORIC [Concomitant]
     Active Substance: FEBUXOSTAT
  16. GINGER                             /01646602/ [Concomitant]
  17. AMBRISENTAN [Suspect]
     Active Substance: AMBRISENTAN
     Indication: PULMONARY ARTERIAL HYPERTENSION
     Dosage: 10 MG, QD
     Route: 065
     Dates: start: 20100504
  18. WARFARIN [Concomitant]
     Active Substance: WARFARIN
  19. OMEPRAZOLE. [Concomitant]
     Active Substance: OMEPRAZOLE
  20. CALCIUM CITRATE [Concomitant]
     Active Substance: CALCIUM CITRATE
  21. TYVASO [Concomitant]
     Active Substance: TREPROSTINIL
  22. VENTAVIS [Concomitant]
     Active Substance: ILOPROST
  23. SPIRULINA                          /01514001/ [Concomitant]
     Active Substance: SPIRULINA

REACTIONS (8)
  - Sepsis [Not Recovered/Not Resolved]
  - Dyspnoea exertional [Unknown]
  - Thrombosis [Unknown]
  - Device related infection [Not Recovered/Not Resolved]
  - Oxygen saturation decreased [Unknown]
  - Loss of consciousness [Unknown]
  - Infection [Not Recovered/Not Resolved]
  - Pneumonia [Unknown]
